FAERS Safety Report 9489516 (Version 2)
Quarter: 2013Q3

REPORT INFORMATION
  Report Type: Spontaneous
  Country: KW (occurrence: KW)
  Receive Date: 20130829
  Receipt Date: 20130829
  Transmission Date: 20140515
  Serious: Yes (Other)
  Sender: FDA-Public Use
  Company Number: PHHY2013KW082722

PATIENT
  Age: 54 Year
  Sex: Female

DRUGS (7)
  1. CICLOSPORIN [Suspect]
     Indication: SCLERITIS
  2. PREDNISOLONE [Suspect]
     Indication: SCLERITIS
     Dosage: 50 MG, DAILY
     Route: 048
  3. METHOTREXATE [Suspect]
     Indication: SCLERITIS
  4. AZATHIOPRINE [Suspect]
     Indication: SCLERITIS
  5. MYCOPHENOLATE MOFETIL [Suspect]
     Indication: SCLERITIS
  6. CORTICOSTEROIDS [Suspect]
     Indication: SCLERITIS
     Route: 061
  7. ADALIMUMAB [Suspect]
     Dosage: 40 MG, EVERY OTHERWEEK
     Route: 058

REACTIONS (6)
  - Myelodysplastic syndrome [Unknown]
  - Anaemia [Unknown]
  - Asthenia [Unknown]
  - Pallor [Unknown]
  - Scleritis [Unknown]
  - Drug ineffective [Unknown]
